FAERS Safety Report 16927219 (Version 1)
Quarter: 2019Q4

REPORT INFORMATION
  Report Type: Spontaneous
  Country: TR (occurrence: TR)
  Receive Date: 20191016
  Receipt Date: 20191016
  Transmission Date: 20200122
  Serious: Yes (Other)
  Sender: FDA-Public Use
  Company Number: NVSC2019TR003304

PATIENT
  Age: 44 Year
  Sex: Male

DRUGS (1)
  1. TRILEPTAL [Suspect]
     Active Substance: OXCARBAZEPINE
     Indication: EPILEPSY
     Dosage: UNK UNK, BID
     Route: 048

REACTIONS (4)
  - Loss of consciousness [Unknown]
  - Drug ineffective [Unknown]
  - Tremor [Unknown]
  - Foaming at mouth [Unknown]
